FAERS Safety Report 10452540 (Version 1)
Quarter: 2014Q3

REPORT INFORMATION
  Report Type: Spontaneous
  Country: US (occurrence: US)
  Receive Date: 20140915
  Receipt Date: 20140915
  Transmission Date: 20150326
  Serious: Yes (Death, Hospitalization)
  Sender: FDA-Public Use
  Company Number: US-SUN PHARMACEUTICAL INDUSTRIES LTD-2014SUN02051

PATIENT

DRUGS (1)
  1. DILTIAZEM HYDROCHLORIDE EXTENDED RELEASE [Suspect]
     Active Substance: DILTIAZEM HYDROCHLORIDE
     Indication: PRODUCT USED FOR UNKNOWN INDICATION
     Route: 048

REACTIONS (12)
  - Shock [Fatal]
  - Atrioventricular block complete [Unknown]
  - Bradycardia [Unknown]
  - Peripheral ischaemia [Unknown]
  - Gastrointestinal necrosis [Unknown]
  - Hypotension [Fatal]
  - Pulseless electrical activity [Unknown]
  - Overdose [Unknown]
  - Toxicity to various agents [Fatal]
  - Respiratory failure [Unknown]
  - Acidosis [Unknown]
  - Abdominal compartment syndrome [Unknown]
